FAERS Safety Report 12456564 (Version 1)
Quarter: 2016Q2

REPORT INFORMATION
  Report Type: Spontaneous
  Country: None (occurrence: US)
  Receive Date: 20160610
  Receipt Date: 20160610
  Transmission Date: 20160815
  Serious: Yes (Death)
  Sender: FDA-Public Use
  Company Number: US-PROCTER_AND_GAMBLE-GS16073459

PATIENT
  Sex: Male

DRUGS (1)
  1. CREST [Suspect]
     Active Substance: SODIUM FLUORIDE
     Route: 002

REACTIONS (2)
  - Death [Fatal]
  - Malaise [Fatal]
